FAERS Safety Report 10128698 (Version 3)
Quarter: 2015Q4

REPORT INFORMATION
  Report Type: Spontaneous
  Country: US (occurrence: US)
  Receive Date: 20140428
  Receipt Date: 20151023
  Transmission Date: 20160304
  Serious: Yes (Life-Threatening, Hospitalization)
  Sender: FDA-Public Use
  Company Number: US-ROCHE-1386872

PATIENT
  Age: 48 Year
  Sex: Female
  Weight: 110 kg

DRUGS (5)
  1. INVIRASE [Suspect]
     Active Substance: SAQUINAVIR MESYLATE
     Indication: HIV INFECTION
     Dosage: 2 CAPSULE
     Route: 048
     Dates: end: 201110
  2. VALSARTAN. [Concomitant]
     Active Substance: VALSARTAN
  3. ACYCLOVIR. [Concomitant]
     Active Substance: ACYCLOVIR
  4. COMBIVIR [Suspect]
     Active Substance: LAMIVUDINE\ZIDOVUDINE
     Indication: HIV INFECTION
     Dosage: 1 TABLET
     Route: 048
     Dates: end: 201110
  5. IBUPROFEN. [Concomitant]
     Active Substance: IBUPROFEN

REACTIONS (3)
  - Chest pain [Recovered/Resolved]
  - Myocardial infarction [Recovered/Resolved]
  - Dyspnoea [Recovered/Resolved]

NARRATIVE: CASE EVENT DATE: 20110705
